FAERS Safety Report 5785377-7 (Version None)
Quarter: 2008Q2

REPORT INFORMATION
  Report Type: 
  Country: None (occurrence: None)
  Receive Date: 20080605
  Receipt Date: 20080218
  Transmission Date: 20081010
  Serious: No
  Sender: FDA-Public Use
  Company Number: A0710154A

PATIENT

DRUGS (4)
  1. ALLI [Suspect]
     Indication: DRUG USE FOR UNKNOWN INDICATION
  2. ATENOLOL [Concomitant]
  3. PRINIVIL [Concomitant]
  4. ZYRTEC [Concomitant]

REACTIONS (1)
  - TINNITUS [None]
